FAERS Safety Report 24843836 (Version 2)
Quarter: 2025Q1

REPORT INFORMATION
  Report Type: Spontaneous
  Country: FR (occurrence: FR)
  Receive Date: 20250115
  Receipt Date: 20250129
  Transmission Date: 20250409
  Serious: Yes (Hospitalization)
  Sender: AUROBINDO
  Company Number: FR-AFSSAPS-AN2024001773

PATIENT
  Age: 86 Year
  Sex: Female

DRUGS (2)
  1. DIGOXIN [Interacting]
     Active Substance: DIGOXIN
     Indication: Atrial fibrillation
     Dosage: 0.25 MILLIGRAM, ONCE A DAY
     Route: 048
     Dates: end: 20241128
  2. CABOZANTINIB [Interacting]
     Active Substance: CABOZANTINIB
     Indication: Renal cancer metastatic
     Dosage: 80 MILLIGRAM, ONCE A DAY
     Route: 048
     Dates: start: 20240701

REACTIONS (2)
  - Toxicity to various agents [Recovered/Resolved]
  - Drug interaction [Recovered/Resolved]

NARRATIVE: CASE EVENT DATE: 20240701
